FAERS Safety Report 9750492 (Version 2)
Quarter: 2013Q4

REPORT INFORMATION
  Report Type: Spontaneous
  Country: US (occurrence: US)
  Receive Date: 20131212
  Receipt Date: 20131212
  Transmission Date: 20140711
  Serious: Yes (Hospitalization, Other)
  Sender: FDA-Public Use
  Company Number: US-GILEAD-2013-0087052

PATIENT
  Sex: Female

DRUGS (6)
  1. LETAIRIS [Suspect]
     Indication: PULMONARY HYPERTENSION
     Dosage: 5 MG, QD
     Route: 065
     Dates: start: 20130409
  2. SILDENAFIL [Concomitant]
     Indication: PULMONARY ARTERIAL HYPERTENSION
  3. ADVAIR [Concomitant]
  4. SPIRIVA [Concomitant]
  5. OXYGEN [Concomitant]
  6. LIDOCAINE [Concomitant]

REACTIONS (2)
  - Chest discomfort [Unknown]
  - Dyspnoea [Unknown]
